FAERS Safety Report 22239660 (Version 1)
Quarter: 2023Q2

REPORT INFORMATION
  Report Type: Spontaneous
  Country: CN (occurrence: CN)
  Receive Date: 20230421
  Receipt Date: 20230421
  Transmission Date: 20230721
  Serious: Yes (Other)
  Sender: FDA-Public Use
  Company Number: CN-UPSHER-SMITH LABORATORIES, LLC-2023USL00312

PATIENT
  Age: 64 Year
  Sex: Male

DRUGS (4)
  1. AMANTADINE HYDROCHLORIDE [Suspect]
     Active Substance: AMANTADINE HYDROCHLORIDE
     Indication: Dyskinesia
     Dosage: UNK
  2. BENSERAZIDE HYDROCHLORIDE\LEVODOPA [Concomitant]
     Active Substance: BENSERAZIDE HYDROCHLORIDE\LEVODOPA
     Indication: Parkinson^s disease
  3. PIRIBEDIL MESYLATE [Concomitant]
     Active Substance: PIRIBEDIL MESYLATE
     Indication: Parkinson^s disease
  4. SELEGILINE [Concomitant]
     Active Substance: SELEGILINE
     Indication: Parkinson^s disease

REACTIONS (1)
  - Inappropriate antidiuretic hormone secretion [Recovered/Resolved]
